FAERS Safety Report 23878703 (Version 2)
Quarter: 2024Q2

REPORT INFORMATION
  Report Type: Spontaneous
  Country: LB (occurrence: LB)
  Receive Date: 20240521
  Receipt Date: 20240528
  Transmission Date: 20240715
  Serious: Yes (Hospitalization)
  Sender: FDA-Public Use
  Company Number: LB-Atnahs Limited-ATNAHS20240501412

PATIENT
  Age: 68 Year
  Sex: Female
  Weight: 75 kg

DRUGS (5)
  1. BONVIVA [Suspect]
     Active Substance: IBANDRONATE SODIUM
     Indication: Osteoporosis
     Dosage: SHE TOOK ONLY ONE PILL
     Route: 048
     Dates: start: 20240513, end: 20240513
  2. AMLODIPINE BESYLATE [Concomitant]
     Active Substance: AMLODIPINE BESYLATE
     Indication: Product used for unknown indication
  3. BISOPROLOL FUMARATE [Concomitant]
     Active Substance: BISOPROLOL FUMARATE
     Indication: Product used for unknown indication
  4. OMEPRAZOLE [Concomitant]
     Active Substance: DONEPEZIL HYDROCHLORIDE\OMEPRAZOLE\OMEPRAZOLE MAGNESIUM
     Indication: Product used for unknown indication
  5. OSSOPAN [Concomitant]
     Indication: Product used for unknown indication

REACTIONS (4)
  - Back pain [Unknown]
  - Myalgia [Not Recovered/Not Resolved]
  - Dyspnoea [Unknown]
  - Intestinal obstruction [Unknown]

NARRATIVE: CASE EVENT DATE: 20240513
